FAERS Safety Report 26147300 (Version 1)
Quarter: 2025Q4

REPORT INFORMATION
  Report Type: Spontaneous
  Country: US (occurrence: US)
  Receive Date: 20251211
  Receipt Date: 20251211
  Transmission Date: 20260118
  Serious: Yes (Other)
  Sender: BLUEPRINT MEDICINES
  Company Number: US-Blueprint Medicines Corporation-2025-AER-02613

PATIENT
  Age: 55 Year
  Sex: Female

DRUGS (1)
  1. AYVAKIT [Suspect]
     Active Substance: AVAPRITINIB
     Indication: Diffuse cutaneous mastocytosis
     Route: 048
     Dates: start: 20240627

REACTIONS (12)
  - Uterine neoplasm [Unknown]
  - Menopause [Unknown]
  - Pain [Unknown]
  - Arthralgia [Unknown]
  - Gait disturbance [Unknown]
  - Headache [Unknown]
  - Abdominal distension [Unknown]
  - Hypersensitivity [Unknown]
  - Sensitive skin [Unknown]
  - Contusion [Unknown]
  - Memory impairment [Recovering/Resolving]
  - Asthenia [Unknown]
